FAERS Safety Report 4364867-8 (Version None)
Quarter: 2004Q2

REPORT INFORMATION
  Report Type: 
  Country: None (occurrence: None)
  Receive Date: 20040521
  Receipt Date: 20040503
  Transmission Date: 20050107
  Serious: Yes (Other)
  Sender: FDA-Public Use
  Company Number: USA040258861

PATIENT
  Age: 59 Year
  Sex: Female
  Weight: 45 kg

DRUGS (5)
  1. FORTEO [Suspect]
     Indication: OSTEOPOROSIS
     Dosage: 20 UG / 1 DAY
     Dates: start: 20030801
  2. CRESTOR (ROSUVASTATIN) [Concomitant]
  3. PROTONIX [Concomitant]
  4. SYMAX (HYOSCYAMINE SULFATE) [Concomitant]
  5. ZOLOFT [Concomitant]

REACTIONS (6)
  - CONTUSION [None]
  - CORNEAL ABRASION [None]
  - FALL [None]
  - MACULAR OEDEMA [None]
  - SWELLING FACE [None]
  - VISION BLURRED [None]
